FAERS Safety Report 4765018-8 (Version None)
Quarter: 2005Q3

REPORT INFORMATION
  Report Type: 
  Country: None (occurrence: None)
  Receive Date: 20050909
  Receipt Date: 20050830
  Transmission Date: 20060218
  Serious: Yes (Other)
  Sender: FDA-Public Use
  Company Number: US-BRISTOL-MYERS SQUIBB COMPANY-13105267

PATIENT
  Age: 63 Year
  Sex: Male

DRUGS (2)
  1. AMPHOTERICIN B [Suspect]
     Indication: BLASTOMYCOSIS
  2. HYDROCORTISONE ACETATE [Concomitant]
     Dosage: 75 MG TO 100 MG ADMINISTERED
     Route: 042

REACTIONS (1)
  - NEPHROGENIC DIABETES INSIPIDUS [None]
